FAERS Safety Report 9424549 (Version 2)
Quarter: 2013Q3

REPORT INFORMATION
  Report Type: Report from Study
  Country: AR (occurrence: AR)
  Receive Date: 20130729
  Receipt Date: 20130906
  Transmission Date: 20140515
  Serious: Yes (Hospitalization)
  Sender: FDA-Public Use
  Company Number: AR-ROCHE-1236438

PATIENT
  Age: 73 Year
  Sex: Female

DRUGS (3)
  1. MYCOPHENOLATE MOFETIL [Suspect]
     Indication: RENAL TRANSPLANT
     Route: 065
     Dates: start: 20070428
  2. BELATACEPT [Suspect]
     Indication: RENAL TRANSPLANT
     Route: 042
     Dates: start: 20070427
  3. METHYLPREDNISOLON [Suspect]
     Indication: RENAL TRANSPLANT
     Route: 065
     Dates: start: 20070428

REACTIONS (3)
  - Erysipelas [Recovered/Resolved]
  - Limb injury [Not Recovered/Not Resolved]
  - Convulsion [Recovered/Resolved]
